FAERS Safety Report 21567269 (Version 2)
Quarter: 2022Q4

REPORT INFORMATION
  Report Type: Spontaneous
  Country: US (occurrence: US)
  Receive Date: 20221108
  Receipt Date: 20221110
  Transmission Date: 20230112
  Serious: No
  Sender: FDA-Public Use
  Company Number: US-SANOFI-01344195

PATIENT
  Age: 34 Year
  Sex: Female

DRUGS (1)
  1. DUPIXENT [Suspect]
     Active Substance: DUPILUMAB
     Indication: Nasal polyps
     Dosage: 300 MG

REACTIONS (6)
  - Injection site exfoliation [Unknown]
  - Epistaxis [Unknown]
  - Injection site induration [Unknown]
  - Injection site bruising [Unknown]
  - Injection site swelling [Unknown]
  - Incorrect dose administered [Unknown]
